FAERS Safety Report 19232784 (Version 2)
Quarter: 2021Q2

REPORT INFORMATION
  Report Type: Report from Study
  Country: DE (occurrence: DE)
  Receive Date: 20210507
  Receipt Date: 20210512
  Transmission Date: 20210717
  Serious: Yes (Hospitalization, Other)
  Sender: FDA-Public Use
  Company Number: DE-BRISTOL-MYERS SQUIBB COMPANY-BMS-2021-033653

PATIENT
  Age: 77 Year
  Sex: Male

DRUGS (9)
  1. NOVALGIN (METAMIZOLE SODIUM) [Concomitant]
     Active Substance: METAMIZOLE SODIUM
     Indication: NEOPLASM
     Dosage: 500 MILLIGRAM
     Route: 065
     Dates: start: 20200105, end: 20210218
  2. NIVOLUMAB [Suspect]
     Active Substance: NIVOLUMAB
     Dosage: 240 MILLIGRAM, Q2WK
     Route: 042
     Dates: start: 20210301, end: 20210329
  3. HYDROMORPHONE [Concomitant]
     Active Substance: HYDROMORPHONE
     Indication: NEOPLASM
     Dosage: 8 MILLIGRAM
     Route: 065
     Dates: start: 20201215
  4. IBUPROFEN. [Concomitant]
     Active Substance: IBUPROFEN
     Indication: NEOPLASM
     Dosage: 1200 MILLIGRAM
     Route: 065
     Dates: end: 20210104
  5. NIVOLUMAB [Suspect]
     Active Substance: NIVOLUMAB
     Indication: RENAL CELL CARCINOMA
     Dosage: 294 MILLIGRAM, Q3WK
     Route: 042
     Dates: start: 20201130, end: 20201223
  6. ZOMETA [Concomitant]
     Active Substance: ZOLEDRONIC ACID
     Indication: PROPHYLAXIS
     Dosage: 4 MILLIGRAM, Q4WK
     Route: 065
  7. MOVICOL [Concomitant]
     Active Substance: POLYETHYLENE GLYCOL 3350\POTASSIUM CHLORIDE\SODIUM BICARBONATE\SODIUM CHLORIDE
     Indication: PROPHYLAXIS
     Dosage: 1 SACHET
     Route: 065
     Dates: start: 20201215
  8. IPILIMUMAB [Suspect]
     Active Substance: IPILIMUMAB
     Indication: RENAL CELL CARCINOMA
     Dosage: 98 MILLIGRAM, Q3WK
     Route: 042
     Dates: start: 20201130
  9. CALCIVIT [CALCIUM;COLECALCIFEROL] [Concomitant]
     Indication: PROPHYLAXIS
     Dosage: 600/400 IU
     Route: 065
     Dates: start: 20201215

REACTIONS (3)
  - Urinary retention [Unknown]
  - Fall [Unknown]
  - Femur fracture [Recovered/Resolved]

NARRATIVE: CASE EVENT DATE: 20210122
